FAERS Safety Report 6024334-2 (Version None)
Quarter: 2008Q4

REPORT INFORMATION
  Report Type: 
  Country: None (occurrence: None)
  Receive Date: 20081231
  Receipt Date: 20081217
  Transmission Date: 20090506
  Serious: Yes (Other)
  Sender: FDA-Public Use
  Company Number: CA-BAYER-200829367NA

PATIENT
  Age: 41 Year
  Sex: Male
  Weight: 71 kg

DRUGS (2)
  1. BETASERON [Suspect]
     Indication: RELAPSING-REMITTING MULTIPLE SCLEROSIS
     Dosage: TOTAL DAILY DOSE: 8 MIU
     Route: 058
     Dates: start: 20080523
  2. RISPERDAL [Concomitant]
     Indication: MANIA
     Dosage: TOTAL DAILY DOSE: 0.25 MG
     Route: 048

REACTIONS (6)
  - AMNESIA [None]
  - CYST [None]
  - DIZZINESS [None]
  - MANIA [None]
  - MUSCLE SPASMS [None]
  - NAUSEA [None]
